FAERS Safety Report 23964089 (Version 1)
Quarter: 2024Q2

REPORT INFORMATION
  Report Type: Spontaneous
  Country: US (occurrence: None)
  Receive Date: 20240611
  Receipt Date: 20240611
  Transmission Date: 20240716
  Serious: Yes (Hospitalization)
  Sender: FDA-Public Use
  Company Number: None

PATIENT
  Age: 44 Year
  Sex: Male
  Weight: 86.18 kg

DRUGS (2)
  1. IBUPROFEN [Suspect]
     Active Substance: IBUPROFEN
  2. IBUPROFEN [Suspect]
     Active Substance: IBUPROFEN

REACTIONS (4)
  - Product supply issue [None]
  - Product distribution issue [None]
  - Constipation [None]
  - Diverticulitis [None]

NARRATIVE: CASE EVENT DATE: 20240604
